FAERS Safety Report 22139802 (Version 1)
Quarter: 2023Q1

REPORT INFORMATION
  Report Type: Report from Study
  Country: MX (occurrence: MX)
  Receive Date: 20230327
  Receipt Date: 20230327
  Transmission Date: 20230418
  Serious: Yes (Other)
  Sender: FDA-Public Use
  Company Number: MX-002147023-NVSC2023MX048895

PATIENT
  Age: 38 Year
  Sex: Female
  Weight: 56 kg

DRUGS (2)
  1. GILENYA [Suspect]
     Active Substance: FINGOLIMOD HYDROCHLORIDE
     Indication: Multiple sclerosis
     Dosage: 0.5 MG, QD
     Route: 048
     Dates: start: 20210617
  2. LEVETIRACETAM [Suspect]
     Active Substance: LEVETIRACETAM
     Indication: Epilepsy
     Dosage: 1 G, Q12H, (SINCE SHE WAS 15 YEARS OLD, UNKNOWN EXACT DATE)
     Route: 065

REACTIONS (4)
  - Multiple sclerosis relapse [Not Recovered/Not Resolved]
  - Gait disturbance [Not Recovered/Not Resolved]
  - Limb discomfort [Not Recovered/Not Resolved]
  - Product use issue [Unknown]

NARRATIVE: CASE EVENT DATE: 20230201
